FAERS Safety Report 14989926 (Version 1)
Quarter: 2018Q2

REPORT INFORMATION
  Report Type: Spontaneous
  Country: US (occurrence: US)
  Receive Date: 20180608
  Receipt Date: 20180608
  Transmission Date: 20180711
  Serious: No
  Sender: FDA-Public Use
  Company Number: US-ROCHE-1985959

PATIENT
  Age: 66 Year
  Sex: Female

DRUGS (3)
  1. CELEBREX [Concomitant]
     Active Substance: CELECOXIB
  2. ACTEMRA [Suspect]
     Active Substance: TOCILIZUMAB
     Indication: PRODUCT USED FOR UNKNOWN INDICATION
     Dosage: INJECT 1 SYRINGE
     Route: 058
  3. FORTEO [Concomitant]
     Active Substance: TERIPARATIDE

REACTIONS (2)
  - Palpitations [Unknown]
  - Vertigo [Unknown]
